FAERS Safety Report 6172924-9 (Version None)
Quarter: 2009Q2

REPORT INFORMATION
  Report Type: 
  Country: None (occurrence: None)
  Receive Date: 20090430
  Receipt Date: 20090423
  Transmission Date: 20091009
  Serious: Yes (Death, Hospitalization)
  Sender: FDA-Public Use
  Company Number: US-CELGENEUS-163-21880-08110504

PATIENT
  Sex: Female
  Weight: 41.8 kg

DRUGS (15)
  1. REVLIMID [Suspect]
     Indication: MYELODYSPLASTIC SYNDROME
     Route: 048
     Dates: start: 20080630, end: 20080910
  2. VIDAZA [Suspect]
     Indication: MYELODYSPLASTIC SYNDROME
     Route: 058
     Dates: start: 20081208, end: 20081216
  3. VIDAZA [Suspect]
     Route: 058
     Dates: start: 20080915, end: 20080101
  4. CEPHALEXIN [Concomitant]
     Indication: DRUG USE FOR UNKNOWN INDICATION
     Route: 048
  5. MEGACE [Concomitant]
     Indication: ANOREXIA
     Route: 048
     Dates: start: 20081013, end: 20090120
  6. CENTRUM SILVER [Concomitant]
     Indication: DRUG USE FOR UNKNOWN INDICATION
     Route: 048
  7. CALCIUM + D [Concomitant]
     Indication: DRUG USE FOR UNKNOWN INDICATION
     Dosage: 500MG-200
     Route: 048
  8. FOSAMAX PLUS D [Concomitant]
     Indication: DRUG USE FOR UNKNOWN INDICATION
     Dosage: 70MG-2800
     Route: 048
  9. OXYGEN [Concomitant]
     Indication: DRUG USE FOR UNKNOWN INDICATION
     Dosage: 2L/MIN
     Route: 055
  10. EXJADE [Concomitant]
     Indication: IRON OVERLOAD
     Route: 048
     Dates: start: 20080919, end: 20090120
  11. ANZEMET [Concomitant]
     Indication: NAUSEA
     Route: 048
     Dates: start: 20081013, end: 20090120
  12. DIFLUCAN [Concomitant]
     Route: 048
     Dates: start: 20081223, end: 20090120
  13. NYSTATIN [Concomitant]
     Route: 048
     Dates: start: 20090112, end: 20090120
  14. ACYCLOVIR [Concomitant]
     Route: 048
     Dates: start: 20090112, end: 20090120
  15. LIDOCAINE HCL VISCOUS [Concomitant]
     Route: 048
     Dates: start: 20090112, end: 20090120

REACTIONS (13)
  - DIZZINESS [None]
  - FAILURE TO THRIVE [None]
  - FATIGUE [None]
  - HAEMOGLOBIN DECREASED [None]
  - INFECTION [None]
  - IRON OVERLOAD [None]
  - MENTAL STATUS CHANGES [None]
  - MYELODYSPLASTIC SYNDROME [None]
  - NEUTROPENIA [None]
  - NO THERAPEUTIC RESPONSE [None]
  - PANCYTOPENIA [None]
  - PYREXIA [None]
  - THROMBOCYTOPENIA [None]
